FAERS Safety Report 14611338 (Version 6)
Quarter: 2019Q2

REPORT INFORMATION
  Report Type: Spontaneous
  Country: US (occurrence: US)
  Receive Date: 20180308
  Receipt Date: 20190509
  Transmission Date: 20190711
  Serious: Yes (Hospitalization, Other)
  Sender: FDA-Public Use
  Company Number: US-ASTRAZENECA-2018SE27617

PATIENT
  Age: 22492 Day
  Sex: Female
  Weight: 58 kg

DRUGS (49)
  1. CLOPIDOGREL [Concomitant]
     Active Substance: CLOPIDOGREL BISULFATE
     Indication: ANTICOAGULANT THERAPY
     Route: 048
     Dates: start: 2014
  2. ZANTAC150/75 [Concomitant]
     Route: 065
     Dates: start: 2011
  3. AMLODIPINE [Concomitant]
     Active Substance: AMLODIPINE BESYLATE
     Route: 048
  4. TRADJENTA [Concomitant]
     Active Substance: LINAGLIPTIN
     Route: 048
  5. TOPROL XL [Concomitant]
     Active Substance: METOPROLOL SUCCINATE
     Route: 048
     Dates: end: 20161114
  6. VITAMIN D3 [Concomitant]
     Active Substance: CHOLECALCIFEROL
     Route: 048
  7. FERGON [Concomitant]
     Active Substance: FERROUS GLUCONATE
     Route: 048
  8. ARANESP [Concomitant]
     Active Substance: DARBEPOETIN ALFA
  9. FOLIC ACID. [Concomitant]
     Active Substance: FOLIC ACID
  10. NEXIUM [Suspect]
     Active Substance: ESOMEPRAZOLE MAGNESIUM
     Indication: GASTROOESOPHAGEAL REFLUX DISEASE
     Route: 048
     Dates: start: 2005
  11. ZOLPIDEM [Concomitant]
     Active Substance: ZOLPIDEM\ZOLPIDEM TARTRATE
     Route: 065
  12. METFORMIN [Concomitant]
     Active Substance: METFORMIN HYDROCHLORIDE
     Route: 048
  13. BENZTROPINE. [Concomitant]
     Active Substance: BENZTROPINE
     Route: 048
  14. ALBUTEROL. [Concomitant]
     Active Substance: ALBUTEROL
  15. SIMVASTATIN. [Concomitant]
     Active Substance: SIMVASTATIN
  16. NEXIUM [Suspect]
     Active Substance: ESOMEPRAZOLE MAGNESIUM
     Indication: GASTROOESOPHAGEAL REFLUX DISEASE
     Route: 048
     Dates: start: 200901, end: 201407
  17. TYLENOL PM [Concomitant]
     Active Substance: ACETAMINOPHEN\DIPHENHYDRAMINE
     Indication: INSOMNIA
     Dosage: VARIOUS TIMES - PRESENT
     Route: 065
  18. LOSARTAN/HCT [Concomitant]
     Active Substance: HYDROCHLOROTHIAZIDE\LOSARTAN POTASSIUM
     Dosage: 100-12.5 MG
     Route: 065
  19. BUTALBITAL [Concomitant]
     Active Substance: BUTALBITAL
     Dosage: 50-32.5-40MG TABLET. 1-2 O.AL AS NEEDED
     Route: 048
  20. FOLIC ACID. [Concomitant]
     Active Substance: FOLIC ACID
  21. FUROSEMIDE. [Concomitant]
     Active Substance: FUROSEMIDE
     Indication: HYPERTENSION
     Route: 048
     Dates: start: 2016
  22. PRAVASTATIN. [Concomitant]
     Active Substance: PRAVASTATIN
     Indication: BLOOD CHOLESTEROL INCREASED
     Route: 065
     Dates: start: 2011
  23. ADVIL [Concomitant]
     Active Substance: IBUPROFEN
     Indication: HEADACHE
     Dosage: VARIOUS TIMES - 2016
     Route: 065
  24. LAMICTAL [Concomitant]
     Active Substance: LAMOTRIGINE
     Route: 048
  25. CALCITRIOL. [Concomitant]
     Active Substance: CALCITRIOL
  26. VITAMIN D2 [Concomitant]
     Active Substance: ERGOCALCIFEROL
  27. TOPROL XL [Concomitant]
     Active Substance: METOPROLOL SUCCINATE
  28. NEXIUM [Suspect]
     Active Substance: ESOMEPRAZOLE MAGNESIUM
     Indication: GASTROOESOPHAGEAL REFLUX DISEASE
     Dosage: GENERIC
     Route: 048
  29. COZAAR [Concomitant]
     Active Substance: LOSARTAN POTASSIUM
     Indication: HYPERTENSION
     Route: 065
     Dates: start: 2010
  30. LISINOPRIL. [Concomitant]
     Active Substance: LISINOPRIL
     Indication: HYPERTENSION
     Route: 065
     Dates: start: 2016
  31. VIGAMOX [Concomitant]
     Active Substance: MOXIFLOXACIN HYDROCHLORIDE
     Indication: ANTIBIOTIC THERAPY
     Route: 065
     Dates: start: 2012
  32. TAGAMET HB [Concomitant]
     Active Substance: CIMETIDINE
     Route: 065
     Dates: start: 2011
  33. COLCHICINE. [Concomitant]
     Active Substance: COLCHICINE
     Route: 048
  34. HYDROCODONE BITARTRATE AND ACETAMINOPHEN [Concomitant]
     Active Substance: ACETAMINOPHEN\HYDROCODONE BITARTRATE
  35. ESTRADIOL. [Concomitant]
     Active Substance: ESTRADIOL
     Route: 048
  36. CALCIUM [Concomitant]
     Active Substance: CALCIUM
     Route: 048
  37. SIMVASTATIN. [Concomitant]
     Active Substance: SIMVASTATIN
  38. HYDRALAZINE [Concomitant]
     Active Substance: HYDRALAZINE HYDROCHLORIDE
     Indication: HYPERTENSION
     Route: 065
     Dates: start: 2016
  39. VITAMINS NOS [Concomitant]
     Active Substance: VITAMINS
     Indication: SUPPLEMENTATION THERAPY
     Route: 065
     Dates: start: 1989, end: 2016
  40. ATORVASTATIN [Concomitant]
     Active Substance: ATORVASTATIN
     Route: 048
  41. ASPIRIN. [Concomitant]
     Active Substance: ASPIRIN
     Route: 048
  42. AMLODIPINE BESYLATE. [Concomitant]
     Active Substance: AMLODIPINE BESYLATE
  43. ALTACE [Concomitant]
     Active Substance: RAMIPRIL
     Indication: HYPERTENSION
     Route: 065
     Dates: start: 2009
  44. PEPCID AC [Concomitant]
     Active Substance: FAMOTIDINE
     Route: 065
     Dates: start: 2010
  45. METOPROLOL. [Concomitant]
     Active Substance: METOPROLOL
     Route: 065
  46. FLUCONAZOLE. [Concomitant]
     Active Substance: FLUCONAZOLE
     Route: 065
  47. FOLIC ACID. [Concomitant]
     Active Substance: FOLIC ACID
     Route: 048
  48. ENOXAPARIN [Concomitant]
     Active Substance: ENOXAPARIN
  49. TRADJENTA [Concomitant]
     Active Substance: LINAGLIPTIN

REACTIONS (7)
  - Acute kidney injury [Not Recovered/Not Resolved]
  - Nephrogenic anaemia [Unknown]
  - Renal impairment [Unknown]
  - Chronic kidney disease [Not Recovered/Not Resolved]
  - Renal failure [Unknown]
  - End stage renal disease [Unknown]
  - Hyperparathyroidism secondary [Unknown]

NARRATIVE: CASE EVENT DATE: 20101001
